FAERS Safety Report 11704993 (Version 29)
Quarter: 2025Q4

REPORT INFORMATION
  Report Type: Spontaneous
  Country: EU (occurrence: EU)
  Receive Date: 20151106
  Receipt Date: 20251014
  Transmission Date: 20260118
  Serious: Yes (Death, Hospitalization, Other)
  Sender: BAUSCH AND LOMB
  Company Number: EU-BAUSCH-BL-2015-026253

PATIENT
  Age: 71 Year
  Sex: Male

DRUGS (317)
  1. ALBUTEROL [Suspect]
     Active Substance: ALBUTEROL
     Indication: Product used for unknown indication
     Dosage: UNK (2 REGIMENS)
     Route: 065
  2. ALBUTEROL [Suspect]
     Active Substance: ALBUTEROL
     Dosage: 1 DOSAGE FORM, BID
     Route: 045
  3. ALBUTEROL [Suspect]
     Active Substance: ALBUTEROL
     Dosage: (2 DOSAGE FORM QD)
     Route: 045
  4. ALBUTEROL [Suspect]
     Active Substance: ALBUTEROL
     Dosage: UNK
     Route: 065
  5. ALBUTEROL [Suspect]
     Active Substance: ALBUTEROL
     Dosage: 1 DOSAGE FORM, BID (2 DOSAGE FORM QD)
     Route: 065
  6. ALBUTEROL [Suspect]
     Active Substance: ALBUTEROL
     Dosage: UNK (2 REGIMENS)
     Route: 045
  7. ALBUTEROL [Suspect]
     Active Substance: ALBUTEROL
     Dosage: UNK (2 REGIMENS)
     Route: 065
  8. ALBUTEROL [Suspect]
     Active Substance: ALBUTEROL
     Dosage: UNK (2 REGIMENS)
     Route: 065
  9. ALBUTEROL [Suspect]
     Active Substance: ALBUTEROL
     Dosage: UNK (2 REGIMENS)
     Route: 065
  10. ALBUTEROL [Suspect]
     Active Substance: ALBUTEROL
     Dosage: UNK (2 REGIMENS)
     Route: 065
  11. ALBUTEROL [Suspect]
     Active Substance: ALBUTEROL
     Dosage: UNK (2 REGIMENS)
     Route: 065
  12. ALBUTEROL [Suspect]
     Active Substance: ALBUTEROL
     Dosage: (2 DOSAGE FORM QD)
     Route: 045
  13. ALBUTEROL [Suspect]
     Active Substance: ALBUTEROL
     Dosage: (2 DOSAGE FORM QD)
     Route: 045
  14. ALBUTEROL [Suspect]
     Active Substance: ALBUTEROL
     Dosage: (2 DOSAGE FORM QD)
     Route: 045
  15. ALBUTEROL [Suspect]
     Active Substance: ALBUTEROL
     Dosage: UNK (2 REGIMENS)
     Route: 065
  16. ALBUTEROL [Suspect]
     Active Substance: ALBUTEROL
     Dosage: UNK (2 REGIMENS)
     Route: 065
  17. ALBUTEROL [Suspect]
     Active Substance: ALBUTEROL
     Dosage: UNK (2 REGIMENS)
     Route: 065
  18. ALBUTEROL [Suspect]
     Active Substance: ALBUTEROL
     Dosage: UNK (2 REGIMENS)
     Route: 065
  19. ALBUTEROL [Suspect]
     Active Substance: ALBUTEROL
     Dosage: UNK (2 REGIMENS)
     Route: 045
  20. ALBUTEROL [Suspect]
     Active Substance: ALBUTEROL
     Dosage: UNK (2 REGIMENS)
     Route: 045
  21. ALBUTEROL [Suspect]
     Active Substance: ALBUTEROL
     Dosage: UNK (2 REGIMENS)
     Route: 045
  22. ALBUTEROL [Suspect]
     Active Substance: ALBUTEROL
     Dosage: UNK (2 REGIMENS)
     Route: 045
  23. NITROGLYCERIN [Suspect]
     Active Substance: NITROGLYCERIN
     Indication: Product used for unknown indication
     Dosage: (2 REGIMENS)
     Route: 062
  24. NITROGLYCERIN [Suspect]
     Active Substance: NITROGLYCERIN
     Dosage: (9 REGIMENS)
     Route: 062
  25. NITROGLYCERIN [Suspect]
     Active Substance: NITROGLYCERIN
     Dosage: UNK
     Route: 062
  26. NITROGLYCERIN [Suspect]
     Active Substance: NITROGLYCERIN
     Dosage: UNKNOWN
     Route: 062
  27. NITROGLYCERIN [Suspect]
     Active Substance: NITROGLYCERIN
     Dosage: (9 REGIMENS)
     Route: 062
  28. NITROGLYCERIN [Suspect]
     Active Substance: NITROGLYCERIN
     Dosage: (9 REGIMENS)
     Route: 062
  29. NITROGLYCERIN [Suspect]
     Active Substance: NITROGLYCERIN
     Dosage: (9 REGIMENS)
     Route: 048
  30. NITROGLYCERIN [Suspect]
     Active Substance: NITROGLYCERIN
     Dosage: (9 REGIMENS)
     Route: 048
  31. NITROGLYCERIN [Suspect]
     Active Substance: NITROGLYCERIN
     Dosage: (9 REGIMENS)
     Route: 062
  32. NITROGLYCERIN [Suspect]
     Active Substance: NITROGLYCERIN
     Dosage: (9 REGIMENS)
     Route: 048
  33. NITROGLYCERIN [Suspect]
     Active Substance: NITROGLYCERIN
     Dosage: (9 REGIMENS)
     Route: 062
  34. NITROGLYCERIN [Suspect]
     Active Substance: NITROGLYCERIN
     Dosage: (9 REGIMENS)
     Route: 062
  35. NITROGLYCERIN [Suspect]
     Active Substance: NITROGLYCERIN
     Dosage: (9 REGIMENS)
     Route: 062
  36. NITROGLYCERIN [Suspect]
     Active Substance: NITROGLYCERIN
     Dosage: (9 REGIMENS)
     Route: 065
  37. NITROGLYCERIN [Suspect]
     Active Substance: NITROGLYCERIN
     Dosage: (9 REGIMENS)
     Route: 065
  38. NITROGLYCERIN [Suspect]
     Active Substance: NITROGLYCERIN
     Dosage: (9 REGIMENS)
     Route: 065
  39. RIVOTRIL [Suspect]
     Active Substance: CLONAZEPAM
     Indication: Product used for unknown indication
     Dosage: 4 MILLIGRAM, QD
     Route: 048
  40. OMEPRAZOLE [Suspect]
     Active Substance: OMEPRAZOLE
     Indication: Product used for unknown indication
     Dosage: 20 MG,QD, ROUTE -GASTRO RESISTANT COATED TABLET
     Route: 048
  41. OMEPRAZOLE [Suspect]
     Active Substance: OMEPRAZOLE
     Dosage: 20 MILLIGRAM, QD
     Route: 048
  42. OMEPRAZOLE [Suspect]
     Active Substance: OMEPRAZOLE
     Dosage: OMEPRAZOLE MAGNESIUM
     Route: 048
  43. OMEPRAZOLE [Suspect]
     Active Substance: OMEPRAZOLE
     Dosage: OMEPRAZOLE MAGNESIUM
     Route: 048
  44. OMEPRAZOLE [Suspect]
     Active Substance: OMEPRAZOLE
     Dosage: OMEPRAZOLE BAYER
     Route: 048
  45. OMEPRAZOLE [Suspect]
     Active Substance: OMEPRAZOLE
     Dosage: 20 MILLIGRAM, QD
     Route: 048
  46. OMEPRAZOLE [Suspect]
     Active Substance: OMEPRAZOLE
     Dosage: OMEPRAZOLE MAGNESIUM
     Route: 065
  47. OMEPRAZOLE [Suspect]
     Active Substance: OMEPRAZOLE
     Dosage: (4 REGIMENS)
     Route: 048
  48. ACETAMINOPHEN [Suspect]
     Active Substance: ACETAMINOPHEN
     Indication: Product used for unknown indication
     Dosage: 100 MG, BID (ONCE EVERY 12 HOURS)
     Route: 048
  49. ACETAMINOPHEN [Suspect]
     Active Substance: ACETAMINOPHEN
     Dosage: 1000 MG, BID (1000 MG, 2X/DAY)
     Route: 048
  50. ACETAMINOPHEN [Suspect]
     Active Substance: ACETAMINOPHEN
     Route: 048
  51. ACETAMINOPHEN [Suspect]
     Active Substance: ACETAMINOPHEN
     Route: 048
  52. ACETAMINOPHEN [Suspect]
     Active Substance: ACETAMINOPHEN
     Dosage: (2 REGIMENS)
     Route: 048
  53. ACETAMINOPHEN [Suspect]
     Active Substance: ACETAMINOPHEN
     Dosage: 100 UNK
     Route: 048
  54. ACETAMINOPHEN [Suspect]
     Active Substance: ACETAMINOPHEN
     Dosage: 200 MG, BID (0.5 DAY 400 MG QD)
     Route: 048
  55. ACETAMINOPHEN [Suspect]
     Active Substance: ACETAMINOPHEN
     Dosage: 20 MG, BID
     Route: 048
  56. POLYETHYLENE GLYCOL 3350 [Suspect]
     Active Substance: POLYETHYLENE GLYCOL 3350
     Indication: Product used for unknown indication
     Dosage: 2 DOSAGE FORM DAILY, 2 DOSAGE FORM, QD
     Route: 048
  57. POLYETHYLENE GLYCOL 3350 [Suspect]
     Active Substance: POLYETHYLENE GLYCOL 3350
     Dosage: 2 DOSAGE FORM DAILY, 2 DOSAGE FORM, QD
     Route: 048
  58. ZOPICLONE [Suspect]
     Active Substance: ZOPICLONE
     Indication: Product used for unknown indication
     Dosage: 15 MG, QD (2 REGIMENS)
     Route: 048
  59. ZOCOR [Suspect]
     Active Substance: SIMVASTATIN
     Indication: Product used for unknown indication
     Dosage: 20 MILLIGRAM, QD
     Route: 048
  60. MIANSERIN HYDROCHLORIDE [Suspect]
     Active Substance: MIANSERIN HYDROCHLORIDE
     Indication: Product used for unknown indication
     Dosage: 60 MG, QD (MIANSERIN) (3 REGIMENS)
     Route: 048
  61. PROPRANOLOL [Suspect]
     Active Substance: PROPRANOLOL HYDROCHLORIDE
     Indication: Product used for unknown indication
     Dosage: 20 MG,QD
     Route: 048
  62. PROPRANOLOL [Suspect]
     Active Substance: PROPRANOLOL HYDROCHLORIDE
     Dosage: 100 MG, BID (100 MG, Q12H)
     Route: 048
  63. PROPRANOLOL [Suspect]
     Active Substance: PROPRANOLOL HYDROCHLORIDE
     Dosage: 200 MG, QD (100 MILLIGRAM BID)
     Route: 048
  64. PROPRANOLOL [Suspect]
     Active Substance: PROPRANOLOL HYDROCHLORIDE
     Dosage: UNK, BID
     Route: 048
  65. CLOBAZAM [Suspect]
     Active Substance: CLOBAZAM
     Indication: Product used for unknown indication
     Dosage: 10 MG, TID (ONCE EVERY 8HOURS) (2 REGIMEN)
     Route: 048
  66. CLOBAZAM [Suspect]
     Active Substance: CLOBAZAM
     Route: 048
  67. CLOBAZAM [Suspect]
     Active Substance: CLOBAZAM
     Dosage: 30 MG, QD (10 MG 3X/DAY)
     Route: 048
  68. CLOBAZAM [Suspect]
     Active Substance: CLOBAZAM
     Dosage: (2 REGIMENS)
     Route: 048
  69. CLOBAZAM [Suspect]
     Active Substance: CLOBAZAM
     Route: 048
  70. CLOBAZAM [Suspect]
     Active Substance: CLOBAZAM
     Route: 048
  71. CLOBAZAM [Suspect]
     Active Substance: CLOBAZAM
     Dosage: UNK, TID (FREQUENCY: 3, TIME: 1, UNIT: DAYS)
     Route: 048
  72. CLOBAZAM [Suspect]
     Active Substance: CLOBAZAM
     Dosage: UNK, Q8HR (FREQUENCY TIME: 8, UNIT: HOURS)
     Route: 048
  73. CLOBAZAM [Suspect]
     Active Substance: CLOBAZAM
     Dosage: UNK, QD (FREQUENCY TIME 1, UNIT: DAYS)
     Route: 048
  74. CLOBAZAM [Suspect]
     Active Substance: CLOBAZAM
     Route: 048
  75. CLOBAZAM [Suspect]
     Active Substance: CLOBAZAM
     Route: 048
  76. CLOBAZAM [Suspect]
     Active Substance: CLOBAZAM
     Route: 048
  77. CLOBAZAM [Suspect]
     Active Substance: CLOBAZAM
     Dosage: (2 REGIMENS)
     Route: 048
  78. CLOBAZAM [Suspect]
     Active Substance: CLOBAZAM
     Dosage: (2 REGIMENS)
     Route: 048
  79. CLOBAZAM [Suspect]
     Active Substance: CLOBAZAM
     Dosage: (2 REGIMENS)
     Route: 048
  80. CLOBAZAM [Suspect]
     Active Substance: CLOBAZAM
     Route: 048
  81. CLOBAZAM [Suspect]
     Active Substance: CLOBAZAM
     Route: 048
  82. CLOBAZAM [Suspect]
     Active Substance: CLOBAZAM
     Route: 048
  83. CLOBAZAM [Suspect]
     Active Substance: CLOBAZAM
     Route: 048
  84. CLOBAZAM [Suspect]
     Active Substance: CLOBAZAM
     Route: 048
  85. CLOBAZAM [Suspect]
     Active Substance: CLOBAZAM
     Route: 048
  86. CLOBAZAM [Suspect]
     Active Substance: CLOBAZAM
     Route: 048
  87. LASIX [Suspect]
     Active Substance: FUROSEMIDE
     Indication: Product used for unknown indication
     Dosage: 40 MILLIGRAM, QD
     Route: 048
  88. LASIX [Suspect]
     Active Substance: FUROSEMIDE
     Dosage: 40 MILLIGRAM, QD
     Route: 048
  89. LASIX [Suspect]
     Active Substance: FUROSEMIDE
     Dosage: 40 MILLIGRAM, QD
     Route: 048
  90. LASIX [Suspect]
     Active Substance: FUROSEMIDE
     Dosage: 40 MILLIGRAM, QD
     Route: 048
  91. LASIX [Suspect]
     Active Substance: FUROSEMIDE
     Dosage: 40 MILLIGRAM, QD
     Route: 048
  92. LASIX [Suspect]
     Active Substance: FUROSEMIDE
     Dosage: 40 MILLIGRAM, QD
     Route: 048
  93. LASIX [Suspect]
     Active Substance: FUROSEMIDE
     Dosage: 40 MILLIGRAM, QD
     Route: 048
  94. LASIX [Suspect]
     Active Substance: FUROSEMIDE
     Dosage: 40 MILLIGRAM, QD
     Route: 048
  95. LASIX [Suspect]
     Active Substance: FUROSEMIDE
     Dosage: 40 MILLIGRAM, QD
     Route: 048
  96. LASIX [Suspect]
     Active Substance: FUROSEMIDE
     Dosage: 40 MILLIGRAM, QD
     Route: 048
  97. LASIX [Suspect]
     Active Substance: FUROSEMIDE
     Dosage: 40 MILLIGRAM, QD
     Route: 048
  98. VERAPAMIL HYDROCHLORIDE [Suspect]
     Active Substance: VERAPAMIL HYDROCHLORIDE
     Indication: Product used for unknown indication
     Route: 048
  99. CELEBREX [Suspect]
     Active Substance: CELECOXIB
     Indication: Product used for unknown indication
     Dosage: (3 REGIMENS)
     Route: 065
  100. PIPAMPERONE [Suspect]
     Active Substance: PIPAMPERONE
     Indication: Product used for unknown indication
     Dosage: 20 MILLIGRAM, QD (2 REGIMENS)
     Route: 048
  101. PIPAMPERONE [Suspect]
     Active Substance: PIPAMPERONE
     Dosage: 20 MG, QD
     Route: 048
  102. TRIHEXYPHENIDYL HYDROCHLORIDE [Suspect]
     Active Substance: TRIHEXYPHENIDYL HYDROCHLORIDE
     Indication: Product used for unknown indication
     Dosage: 1 DF,QD
     Route: 048
  103. TRIHEXYPHENIDYL HYDROCHLORIDE [Suspect]
     Active Substance: TRIHEXYPHENIDYL HYDROCHLORIDE
     Dosage: UNK UNK, QD
     Route: 048
  104. TRIHEXYPHENIDYL HYDROCHLORIDE [Suspect]
     Active Substance: TRIHEXYPHENIDYL HYDROCHLORIDE
     Dosage: 1 DF,QD
  105. TRIHEXYPHENIDYL HYDROCHLORIDE [Suspect]
     Active Substance: TRIHEXYPHENIDYL HYDROCHLORIDE
     Dosage: UNK UNK, QD
     Route: 048
  106. TRIHEXYPHENIDYL HYDROCHLORIDE [Suspect]
     Active Substance: TRIHEXYPHENIDYL HYDROCHLORIDE
     Dosage: 1 DF,QD
     Route: 048
  107. TRIHEXYPHENIDYL HYDROCHLORIDE [Suspect]
     Active Substance: TRIHEXYPHENIDYL HYDROCHLORIDE
     Dosage: 1 DF,QD
     Route: 048
  108. TRIHEXYPHENIDYL HYDROCHLORIDE [Suspect]
     Active Substance: TRIHEXYPHENIDYL HYDROCHLORIDE
     Dosage: UNK UNK, QD
     Route: 048
  109. TRIHEXYPHENIDYL HYDROCHLORIDE [Suspect]
     Active Substance: TRIHEXYPHENIDYL HYDROCHLORIDE
     Dosage: UNK UNK, QD
     Route: 048
  110. TRIHEXYPHENIDYL HYDROCHLORIDE [Suspect]
     Active Substance: TRIHEXYPHENIDYL HYDROCHLORIDE
     Dosage: UNK UNK, QD
     Route: 048
  111. SALMETEROL XINAFOATE [Suspect]
     Active Substance: SALMETEROL XINAFOATE
     Indication: Product used for unknown indication
     Dosage: 1 DOSAGE FORM, Q12H, 1 DF,BID (1 PUFF)
     Route: 045
  112. SALMETEROL XINAFOATE [Suspect]
     Active Substance: SALMETEROL XINAFOATE
     Route: 045
  113. SALMETEROL XINAFOATE [Suspect]
     Active Substance: SALMETEROL XINAFOATE
     Dosage: 2 DOSAGE FORM, BID (2 REGIMENS)
     Route: 045
  114. SALMETEROL XINAFOATE [Suspect]
     Active Substance: SALMETEROL XINAFOATE
     Dosage: 2 DOSAGE FORM, BID (2 DF, Q12H)
     Route: 045
  115. SALMETEROL XINAFOATE [Suspect]
     Active Substance: SALMETEROL XINAFOATE
     Dosage: 2 DOSAGE FORM, BID (2 DF, Q12H)
     Route: 045
  116. SALMETEROL XINAFOATE [Suspect]
     Active Substance: SALMETEROL XINAFOATE
     Dosage: 2 DOSAGE FORM, BID (2 DF, Q12H)
     Route: 045
  117. SALMETEROL XINAFOATE [Suspect]
     Active Substance: SALMETEROL XINAFOATE
     Route: 045
  118. SALMETEROL XINAFOATE [Suspect]
     Active Substance: SALMETEROL XINAFOATE
     Dosage: 1 DOSAGE FORM, Q12H, 1 DF,BID (1 PUFF)
     Route: 045
  119. DIACEREIN [Suspect]
     Active Substance: DIACEREIN
     Indication: Product used for unknown indication
     Dosage: 50 MG, 2X/DAY (ONCE EVERY 12HOURS)
     Route: 048
  120. DIACEREIN [Suspect]
     Active Substance: DIACEREIN
     Dosage: 100 MG, BID
     Route: 048
  121. DIACEREIN [Suspect]
     Active Substance: DIACEREIN
     Route: 048
  122. DIACEREIN [Suspect]
     Active Substance: DIACEREIN
     Dosage: 200 MG, QD (100 MILLIGRAM, BID), 3 REGIMENS
     Route: 048
  123. ESOMEPRAZOLE MAGNESIUM [Suspect]
     Active Substance: ESOMEPRAZOLE MAGNESIUM
     Indication: Product used for unknown indication
     Dosage: ESOMEPRAZOLE MAGNESIUM
     Route: 048
  124. ESOMEPRAZOLE MAGNESIUM [Suspect]
     Active Substance: ESOMEPRAZOLE MAGNESIUM
     Dosage: 20 MILLIGRAM, QD (ESOMEPRAZOLE DCI)
     Route: 048
  125. ESOMEPRAZOLE MAGNESIUM [Suspect]
     Active Substance: ESOMEPRAZOLE MAGNESIUM
     Route: 048
  126. ESOMEPRAZOLE MAGNESIUM [Suspect]
     Active Substance: ESOMEPRAZOLE MAGNESIUM
     Route: 048
  127. ESOMEPRAZOLE MAGNESIUM [Suspect]
     Active Substance: ESOMEPRAZOLE MAGNESIUM
     Dosage: 20 MG, QD
     Route: 048
  128. ESOMEPRAZOLE MAGNESIUM [Suspect]
     Active Substance: ESOMEPRAZOLE MAGNESIUM
     Dosage: 20 MG, QD
     Route: 048
  129. ESOMEPRAZOLE MAGNESIUM [Suspect]
     Active Substance: ESOMEPRAZOLE MAGNESIUM
     Dosage: ESOMEPRAZOLE SODIUM?POWDER FOR SOLUTION FOR INJECTION/INFUSION
     Route: 048
  130. ASPIRIN LYSINE [Suspect]
     Active Substance: ASPIRIN LYSINE
     Indication: Product used for unknown indication
     Route: 048
  131. ASPIRIN LYSINE [Suspect]
     Active Substance: ASPIRIN LYSINE
     Route: 048
  132. SALMETEROL XINAFOATE [Suspect]
     Active Substance: SALMETEROL XINAFOATE
     Indication: Product used for unknown indication
     Route: 045
  133. SALMETEROL XINAFOATE [Suspect]
     Active Substance: SALMETEROL XINAFOATE
     Dosage: 2 DOSAGE FORM, QD 1 DF,BID (1 PUFF) (ONCE EVERY 12HOURS)
     Route: 045
  134. SALMETEROL XINAFOATE [Suspect]
     Active Substance: SALMETEROL XINAFOATE
     Dosage: UNK, BID (1 PUFF)
     Route: 045
  135. SALMETEROL XINAFOATE [Suspect]
     Active Substance: SALMETEROL XINAFOATE
     Dosage: 1 DOSAGE FORM, 2/DAY, 0.50 DAILY
     Route: 045
  136. SALMETEROL XINAFOATE [Suspect]
     Active Substance: SALMETEROL XINAFOATE
     Dosage: 2 DOSAGE FORM, QD 1 DF,BID (1 PUFF) (ONCE EVERY 12HOURS)
     Route: 045
  137. SALMETEROL XINAFOATE [Suspect]
     Active Substance: SALMETEROL XINAFOATE
     Dosage: 2 DOSAGE FORM, QD 1 DF,BID (1 PUFF) (ONCE EVERY 12HOURS)
     Route: 045
  138. SALMETEROL XINAFOATE [Suspect]
     Active Substance: SALMETEROL XINAFOATE
     Dosage: 2 DOSAGE FORM, QD 1 DF,BID (1 PUFF) (ONCE EVERY 12HOURS)
     Route: 045
  139. SALMETEROL XINAFOATE [Suspect]
     Active Substance: SALMETEROL XINAFOATE
     Dosage: 2 DOSAGE FORM, QD 1 DF,BID (1 PUFF) (ONCE EVERY 12HOURS)
     Route: 045
  140. SALMETEROL XINAFOATE [Suspect]
     Active Substance: SALMETEROL XINAFOATE
     Dosage: 2 DOSAGE FORM, QD 1 DF,BID (1 PUFF) (ONCE EVERY 12HOURS)
     Route: 045
  141. SALMETEROL XINAFOATE [Suspect]
     Active Substance: SALMETEROL XINAFOATE
     Dosage: 2 DOSAGE FORM, QD 1 DF,BID (1 PUFF) (ONCE EVERY 12HOURS)
     Route: 045
  142. SALMETEROL XINAFOATE [Suspect]
     Active Substance: SALMETEROL XINAFOATE
     Dosage: 2 DOSAGE FORM, QD 1 DF,BID (1 PUFF) (ONCE EVERY 12HOURS)
     Route: 045
  143. SALMETEROL XINAFOATE [Suspect]
     Active Substance: SALMETEROL XINAFOATE
     Dosage: 2 DOSAGE FORM, QD 1 DF,BID (1 PUFF) (ONCE EVERY 12HOURS)
     Route: 045
  144. SALMETEROL XINAFOATE [Suspect]
     Active Substance: SALMETEROL XINAFOATE
     Dosage: 2 DOSAGE FORM, QD 1 DF,BID (1 PUFF) (ONCE EVERY 12HOURS)
     Route: 045
  145. SALMETEROL XINAFOATE [Suspect]
     Active Substance: SALMETEROL XINAFOATE
     Dosage: 2 DOSAGE FORM, QD 1 DF,BID (1 PUFF) (ONCE EVERY 12HOURS)
     Route: 045
  146. NITROGLYCERIN [Suspect]
     Active Substance: NITROGLYCERIN
     Indication: Product used for unknown indication
     Route: 062
  147. NITROGLYCERIN [Suspect]
     Active Substance: NITROGLYCERIN
     Dosage: (3 REGIMENS)
     Route: 062
  148. NITROGLYCERIN [Suspect]
     Active Substance: NITROGLYCERIN
     Route: 065
  149. NITROGLYCERIN [Suspect]
     Active Substance: NITROGLYCERIN
     Route: 065
  150. NITROGLYCERIN [Suspect]
     Active Substance: NITROGLYCERIN
     Route: 048
  151. NITROGLYCERIN [Suspect]
     Active Substance: NITROGLYCERIN
     Route: 065
  152. NITROGLYCERIN [Suspect]
     Active Substance: NITROGLYCERIN
     Route: 065
  153. NITROGLYCERIN [Suspect]
     Active Substance: NITROGLYCERIN
     Route: 065
  154. PREDNAZOLINE [Suspect]
     Active Substance: PREDNAZOLINE
     Indication: Product used for unknown indication
     Dosage: 1 PUFF, (1 DF, QD) (1 PUFF, QD)
     Route: 045
  155. PREDNAZOLINE [Suspect]
     Active Substance: PREDNAZOLINE
     Dosage: 1 DF, QD
     Route: 045
  156. PREDNAZOLINE [Suspect]
     Active Substance: PREDNAZOLINE
     Dosage: 1 PUFF, QD
     Route: 045
  157. PREDNAZOLINE [Suspect]
     Active Substance: PREDNAZOLINE
     Dosage: 1 PUFF, QD
     Route: 045
  158. PREDNAZOLINE [Suspect]
     Active Substance: PREDNAZOLINE
     Dosage: 1 DF, QD
     Route: 045
  159. PREDNAZOLINE [Suspect]
     Active Substance: PREDNAZOLINE
     Dosage: 1 DF, QD
     Route: 045
  160. PREDNAZOLINE [Suspect]
     Active Substance: PREDNAZOLINE
     Dosage: 1 DF, QD
     Route: 045
  161. PREDNAZOLINE [Suspect]
     Active Substance: PREDNAZOLINE
     Dosage: 1 DF, QD
     Route: 045
  162. PREDNAZOLINE [Suspect]
     Active Substance: PREDNAZOLINE
     Dosage: 1 DF, QD
     Route: 045
  163. PREDNAZOLINE [Suspect]
     Active Substance: PREDNAZOLINE
     Dosage: 1 DF, QD
     Route: 045
  164. PREDNAZOLINE [Suspect]
     Active Substance: PREDNAZOLINE
     Dosage: 1 DF, QD
     Route: 045
  165. PREDNAZOLINE [Suspect]
     Active Substance: PREDNAZOLINE
     Dosage: 1 DF, QD
     Route: 045
  166. PREDNAZOLINE [Suspect]
     Active Substance: PREDNAZOLINE
     Dosage: 1 DF, QD
     Route: 065
  167. PREDNAZOLINE [Suspect]
     Active Substance: PREDNAZOLINE
     Dosage: 1 DF, QD
     Route: 065
  168. PREDNAZOLINE [Suspect]
     Active Substance: PREDNAZOLINE
     Dosage: 1 DF, QD
     Route: 065
  169. PREDNAZOLINE [Suspect]
     Active Substance: PREDNAZOLINE
     Dosage: 1 DF, QD
     Route: 065
  170. PREDNAZOLINE [Suspect]
     Active Substance: PREDNAZOLINE
     Dosage: 1 DF, QD
  171. PREDNAZOLINE [Suspect]
     Active Substance: PREDNAZOLINE
     Dosage: 1 DF, QD
  172. ASPIRIN LYSINE [Suspect]
     Active Substance: ASPIRIN LYSINE
     Indication: Product used for unknown indication
     Dosage: 250 MILLIGRAM, QD
     Route: 048
  173. ASPIRIN LYSINE [Suspect]
     Active Substance: ASPIRIN LYSINE
     Dosage: 20 MILLIGRAM, QD
     Route: 048
  174. ASPIRIN LYSINE [Suspect]
     Active Substance: ASPIRIN LYSINE
     Dosage: 250 MILLIGRAM, QD
     Route: 048
  175. ASPIRIN LYSINE [Suspect]
     Active Substance: ASPIRIN LYSINE
     Dosage: 20 MILLIGRAM, QD
     Route: 048
  176. ASPIRIN LYSINE [Suspect]
     Active Substance: ASPIRIN LYSINE
     Dosage: 20 MILLIGRAM, QD
     Route: 048
  177. POLYETHYLENE GLYCOLS [Suspect]
     Active Substance: POLYETHYLENE GLYCOLS
     Indication: Product used for unknown indication
     Route: 048
  178. POLYETHYLENE GLYCOLS [Suspect]
     Active Substance: POLYETHYLENE GLYCOLS
     Route: 048
  179. POLYETHYLENE GLYCOLS [Suspect]
     Active Substance: POLYETHYLENE GLYCOLS
     Route: 048
  180. POLYETHYLENE GLYCOLS [Suspect]
     Active Substance: POLYETHYLENE GLYCOLS
     Route: 048
  181. POLYETHYLENE GLYCOLS [Suspect]
     Active Substance: POLYETHYLENE GLYCOLS
     Route: 065
  182. CLONAZEPAM [Suspect]
     Active Substance: CLONAZEPAM
     Indication: Product used for unknown indication
     Dosage: 4 MG,QD
     Route: 048
  183. CLONAZEPAM [Suspect]
     Active Substance: CLONAZEPAM
     Dosage: 30 MG,QD
     Route: 048
  184. CLONAZEPAM [Suspect]
     Active Substance: CLONAZEPAM
     Dosage: UNKNOWN
     Route: 048
  185. CLONAZEPAM [Suspect]
     Active Substance: CLONAZEPAM
     Dosage: 30 MG,QD
     Route: 048
  186. FUROSEMIDE [Suspect]
     Active Substance: FUROSEMIDE
     Indication: Product used for unknown indication
     Dosage: 40 MG, QD (3 REGIMENS)
     Route: 048
  187. ACETAMINOPHEN [Suspect]
     Active Substance: ACETAMINOPHEN
     Indication: Product used for unknown indication
     Dosage: 1000 MG, BID
     Route: 048
  188. ACETAMINOPHEN [Suspect]
     Active Substance: ACETAMINOPHEN
     Dosage: (2 REGIMENS)
     Route: 048
  189. ACETAMINOPHEN [Suspect]
     Active Substance: ACETAMINOPHEN
     Route: 048
  190. ACETAMINOPHEN [Suspect]
     Active Substance: ACETAMINOPHEN
     Route: 048
  191. ACETAMINOPHEN [Suspect]
     Active Substance: ACETAMINOPHEN
     Route: 048
  192. ACETAMINOPHEN [Suspect]
     Active Substance: ACETAMINOPHEN
     Dosage: 1000 MILLIGRAM, Q12H
     Route: 048
  193. ACETAMINOPHEN [Suspect]
     Active Substance: ACETAMINOPHEN
     Route: 048
  194. ACETAMINOPHEN [Suspect]
     Active Substance: ACETAMINOPHEN
     Route: 048
  195. ACETAMINOPHEN [Suspect]
     Active Substance: ACETAMINOPHEN
     Dosage: 2000 MG,QD
     Route: 048
  196. ACETAMINOPHEN [Suspect]
     Active Substance: ACETAMINOPHEN
     Dosage: 1000 MILLIGRAM PER DECILITRE, BID ((1000 MG, 2X/DAY (ONCE EVERY 12HOURS)); ORAL USE
     Route: 048
  197. ACETAMINOPHEN [Suspect]
     Active Substance: ACETAMINOPHEN
     Route: 048
  198. ACETAMINOPHEN [Suspect]
     Active Substance: ACETAMINOPHEN
     Route: 048
  199. ASPIRIN DL-LYSINE\GLYCINE [Suspect]
     Active Substance: ASPIRIN DL-LYSINE\GLYCINE
     Indication: Product used for unknown indication
     Route: 048
  200. ASPIRIN DL-LYSINE\GLYCINE [Suspect]
     Active Substance: ASPIRIN DL-LYSINE\GLYCINE
     Dosage: 20 MG,QD, ACETYLSALICYLATE LYSINE
     Route: 048
  201. ASPIRIN DL-LYSINE\GLYCINE [Suspect]
     Active Substance: ASPIRIN DL-LYSINE\GLYCINE
     Route: 065
  202. ASPIRIN [Suspect]
     Active Substance: ASPIRIN
     Indication: Product used for unknown indication
     Dosage: 20 MG,QD (3 REGIMENS)
     Route: 048
  203. ASPIRIN [Suspect]
     Active Substance: ASPIRIN
     Dosage: (2 REGIMENS)
     Route: 048
  204. ASPIRIN [Suspect]
     Active Substance: ASPIRIN
     Dosage: (3 REGIMENS)
     Route: 048
  205. ASPIRIN [Suspect]
     Active Substance: ASPIRIN
     Dosage: }100 MG
     Route: 048
  206. ASPIRIN [Suspect]
     Active Substance: ASPIRIN
     Dosage: }100 MG
     Route: 065
  207. ASPIRIN [Suspect]
     Active Substance: ASPIRIN
     Dosage: 20 MG,QD (3 REGIMENS)
     Route: 048
  208. ASPIRIN [Suspect]
     Active Substance: ASPIRIN
     Dosage: 20 MG,QD (3 REGIMENS)
     Route: 048
  209. ASPIRIN [Suspect]
     Active Substance: ASPIRIN
     Dosage: 20 MG,QD (3 REGIMENS)
     Route: 048
  210. ASPIRIN [Suspect]
     Active Substance: ASPIRIN
     Dosage: 20 MG,QD (3 REGIMENS)
     Route: 048
  211. ASPIRIN [Suspect]
     Active Substance: ASPIRIN
     Dosage: 20 MG,QD (3 REGIMENS)
     Route: 048
  212. ASPIRIN [Suspect]
     Active Substance: ASPIRIN
     Dosage: 20 MG,QD (3 REGIMENS)
     Route: 048
  213. ASPIRIN [Suspect]
     Active Substance: ASPIRIN
     Dosage: 20 MG,QD (3 REGIMENS)
     Route: 048
  214. ASPIRIN [Suspect]
     Active Substance: ASPIRIN
     Dosage: 20 MG,QD (3 REGIMENS)
     Route: 048
  215. ASPIRIN [Suspect]
     Active Substance: ASPIRIN
     Dosage: 20 MG,QD (3 REGIMENS)
     Route: 048
  216. ASPIRIN [Suspect]
     Active Substance: ASPIRIN
     Dosage: 20 MG,QD (3 REGIMENS)
     Route: 048
  217. ASPIRIN [Suspect]
     Active Substance: ASPIRIN
     Dosage: 20 MG,QD (3 REGIMENS)
     Route: 048
  218. ASPIRIN [Suspect]
     Active Substance: ASPIRIN
     Dosage: 20 MG,QD (3 REGIMENS)
     Route: 048
  219. ASPIRIN [Suspect]
     Active Substance: ASPIRIN
     Dosage: 20 MG,QD (3 REGIMENS)
     Route: 048
  220. ASPIRIN [Suspect]
     Active Substance: ASPIRIN
     Dosage: 20 MG,QD (3 REGIMENS)
     Route: 048
  221. ASPIRIN [Suspect]
     Active Substance: ASPIRIN
     Dosage: DAILY DOSE: }100 MG
     Route: 065
  222. ASPIRIN [Suspect]
     Active Substance: ASPIRIN
     Dosage: DAILY DOSE: }100 MG
     Route: 065
  223. ASPIRIN [Suspect]
     Active Substance: ASPIRIN
     Dosage: DAILY DOSE: }100 MG
     Route: 065
  224. ASPIRIN [Suspect]
     Active Substance: ASPIRIN
     Dosage: DAILY DOSE: }100 MG
     Route: 065
  225. ASPIRIN [Suspect]
     Active Substance: ASPIRIN
     Route: 065
  226. ASPIRIN [Suspect]
     Active Substance: ASPIRIN
     Dosage: 20 MG,QD (3 REGIMENS)
     Route: 048
  227. ASPIRIN [Suspect]
     Active Substance: ASPIRIN
     Dosage: 20 MG,QD (3 REGIMENS)
     Route: 048
  228. ASPIRIN [Suspect]
     Active Substance: ASPIRIN
     Dosage: 20 MG,QD (3 REGIMENS)
     Route: 048
  229. ASPIRIN [Suspect]
     Active Substance: ASPIRIN
     Dosage: 20 MG,QD (3 REGIMENS)
     Route: 048
  230. ASPIRIN [Suspect]
     Active Substance: ASPIRIN
     Dosage: 20 MG,QD (3 REGIMENS)
     Route: 048
  231. ASPIRIN [Suspect]
     Active Substance: ASPIRIN
     Dosage: 20 MG,QD (3 REGIMENS)
     Route: 048
  232. ASPIRIN [Suspect]
     Active Substance: ASPIRIN
     Dosage: 20 MG,QD (3 REGIMENS)
     Route: 048
  233. CELECOXIB [Suspect]
     Active Substance: CELECOXIB
     Indication: Product used for unknown indication
     Route: 065
  234. CELECOXIB [Suspect]
     Active Substance: CELECOXIB
     Route: 065
  235. CELECOXIB [Suspect]
     Active Substance: CELECOXIB
     Route: 065
  236. CELECOXIB [Suspect]
     Active Substance: CELECOXIB
     Route: 065
  237. CELECOXIB [Suspect]
     Active Substance: CELECOXIB
     Route: 065
  238. VERAPAMIL HYDROCHLORIDE [Suspect]
     Active Substance: VERAPAMIL HYDROCHLORIDE
     Indication: Product used for unknown indication
     Dosage: 240 MG,QD
     Route: 048
  239. VERAPAMIL HYDROCHLORIDE [Suspect]
     Active Substance: VERAPAMIL HYDROCHLORIDE
     Dosage: 240 MG, UNK
     Route: 065
  240. VERAPAMIL HYDROCHLORIDE [Suspect]
     Active Substance: VERAPAMIL HYDROCHLORIDE
     Dosage: 240 MG,QD
     Route: 048
  241. VERAPAMIL HYDROCHLORIDE [Suspect]
     Active Substance: VERAPAMIL HYDROCHLORIDE
     Dosage: UNKNOWN
     Route: 048
  242. SIMVASTATIN [Suspect]
     Active Substance: SIMVASTATIN
     Indication: Product used for unknown indication
     Dosage: 20 MG, QD
     Route: 048
  243. SIMVASTATIN [Suspect]
     Active Substance: SIMVASTATIN
     Dosage: 20 MG, QD (2 REGIMENS)
     Route: 048
  244. SIMVASTATIN [Suspect]
     Active Substance: SIMVASTATIN
     Route: 048
  245. SIMVASTATIN [Suspect]
     Active Substance: SIMVASTATIN
     Dosage: 20 MG, QD (2 REGIMENS)
     Route: 048
  246. SIMVASTATIN [Suspect]
     Active Substance: SIMVASTATIN
     Dosage: 20 MG, QD (2 REGIMENS)
     Route: 048
  247. SIMVASTATIN [Suspect]
     Active Substance: SIMVASTATIN
     Dosage: 20 MG, QD (2 REGIMENS)
     Route: 048
  248. SIMVASTATIN [Suspect]
     Active Substance: SIMVASTATIN
     Route: 048
  249. SIMVASTATIN [Suspect]
     Active Substance: SIMVASTATIN
     Route: 048
  250. CLOBAZAM [Suspect]
     Active Substance: CLOBAZAM
     Indication: Product used for unknown indication
     Dosage: (2 REGIMENS)
     Route: 048
  251. CLOBAZAM [Suspect]
     Active Substance: CLOBAZAM
     Route: 048
  252. CLOBAZAM [Suspect]
     Active Substance: CLOBAZAM
     Dosage: (2 REGIMENS)
     Route: 048
  253. CLOBAZAM [Suspect]
     Active Substance: CLOBAZAM
     Dosage: 30 MG, QD (10 MILLIGRAM TID); ORAL USE) (2 REGIMENS)
     Route: 048
  254. CLOBAZAM [Suspect]
     Active Substance: CLOBAZAM
     Route: 048
  255. CLOBAZAM [Suspect]
     Active Substance: CLOBAZAM
     Dosage: 30 MG, QD (10 MILLIGRAM TID (3X/DAY (ONCE EVERY 8HOURS)); ORAL USE
     Route: 048
  256. ASPIRIN [Suspect]
     Active Substance: ASPIRIN
     Indication: Product used for unknown indication
     Dosage: 250 MG, QD
     Route: 048
  257. ASPIRIN LYSINE [Suspect]
     Active Substance: ASPIRIN LYSINE
     Indication: Product used for unknown indication
     Dosage: 20 MG, QD
     Route: 048
  258. ASPIRIN LYSINE [Suspect]
     Active Substance: ASPIRIN LYSINE
     Dosage: 250 MG, QD
     Route: 048
  259. ASPIRIN LYSINE [Suspect]
     Active Substance: ASPIRIN LYSINE
     Route: 048
  260. NITROGLYCERIN [Suspect]
     Active Substance: NITROGLYCERIN
     Indication: Product used for unknown indication
     Dosage: 10 MILLIGRAM, 1/DAY (2 REGIMENS)
     Route: 065
  261. NITROGLYCERIN [Suspect]
     Active Substance: NITROGLYCERIN
     Dosage: 10 MG, QD
     Route: 048
  262. NITROGLYCERIN [Suspect]
     Active Substance: NITROGLYCERIN
     Dosage: 10 MG, QD (2 REGIMEN)
     Route: 065
  263. NITROGLYCERIN [Suspect]
     Active Substance: NITROGLYCERIN
     Route: 065
  264. ALTACE [Suspect]
     Active Substance: RAMIPRIL
     Indication: Product used for unknown indication
     Route: 048
  265. ALTACE [Suspect]
     Active Substance: RAMIPRIL
     Route: 048
  266. ALTACE [Suspect]
     Active Substance: RAMIPRIL
     Dosage: UNKNOWN
     Route: 048
  267. ALTACE [Suspect]
     Active Substance: RAMIPRIL
     Route: 048
  268. ALTACE [Suspect]
     Active Substance: RAMIPRIL
     Route: 048
  269. ALTACE [Suspect]
     Active Substance: RAMIPRIL
     Route: 048
  270. ALTACE [Suspect]
     Active Substance: RAMIPRIL
     Route: 048
  271. ALTACE [Suspect]
     Active Substance: RAMIPRIL
     Route: 048
  272. RAMIPRIL [Suspect]
     Active Substance: RAMIPRIL
     Indication: Product used for unknown indication
     Route: 048
  273. RAMIPRIL [Suspect]
     Active Substance: RAMIPRIL
     Route: 048
  274. RAMIPRIL [Suspect]
     Active Substance: RAMIPRIL
     Dosage: 10 MG, QD
     Route: 048
  275. TREMIN [Suspect]
     Active Substance: TRIHEXYPHENIDYL HYDROCHLORIDE
     Indication: Product used for unknown indication
     Dosage: (3 REGIMENS)
     Route: 048
  276. TREMIN [Suspect]
     Active Substance: TRIHEXYPHENIDYL HYDROCHLORIDE
     Route: 048
  277. PREDNAZOLINE [Suspect]
     Active Substance: PREDNAZOLINE
     Indication: Product used for unknown indication
     Dosage: 1 DF, QD (1 DF, 1X/DAY/1 PUFF, QD)
     Route: 045
  278. PREDNAZOLINE [Suspect]
     Active Substance: PREDNAZOLINE
     Dosage: 1 DF, QD (6 ADMINISTRATIONS GIVEN)
     Route: 045
  279. PROPAFENONE HYDROCHLORIDE [Suspect]
     Active Substance: PROPAFENONE HYDROCHLORIDE
     Indication: Product used for unknown indication
     Route: 048
  280. PROPAFENONE HYDROCHLORIDE [Suspect]
     Active Substance: PROPAFENONE HYDROCHLORIDE
     Route: 048
  281. ASPIRIN LYSINE [Suspect]
     Active Substance: ASPIRIN LYSINE
     Indication: Product used for unknown indication
     Route: 048
  282. ASPIRIN LYSINE [Suspect]
     Active Substance: ASPIRIN LYSINE
     Route: 065
  283. OXYMETAZOLINE HYDROCHLORIDE\PREDNISOLONE SODIUM PHOSPHATE [Suspect]
     Active Substance: OXYMETAZOLINE HYDROCHLORIDE\PREDNISOLONE SODIUM PHOSPHATE
     Indication: Product used for unknown indication
     Dosage: 1 DOSAGE FORM, QD (1 DF,1X/DAY/1 PUFF, QD).
     Route: 045
  284. CELECOXIB [Suspect]
     Active Substance: CELECOXIB
     Indication: Product used for unknown indication
     Route: 065
  285. NITROGLYCERIN [Suspect]
     Active Substance: NITROGLYCERIN
     Indication: Product used for unknown indication
     Dosage: 10 MG, QD (2 REGIMENS)
     Route: 048
  286. NITROGLYCERIN [Suspect]
     Active Substance: NITROGLYCERIN
     Dosage: 10 MG, QD
     Route: 065
  287. NITROGLYCERIN [Suspect]
     Active Substance: NITROGLYCERIN
     Dosage: (8 REGIMENS)
     Route: 065
  288. POLYETHYLENE GLYCOL 3350 [Suspect]
     Active Substance: POLYETHYLENE GLYCOL 3350
     Indication: Product used for unknown indication
     Dosage: 2 DOSAGE FORM, QD
     Route: 048
  289. POLYETHYLENE GLYCOL 3350 [Suspect]
     Active Substance: POLYETHYLENE GLYCOL 3350
     Dosage: 3 REGIMENS
     Route: 065
  290. OMEPRAZOLE [Suspect]
     Active Substance: OMEPRAZOLE
     Indication: Product used for unknown indication
     Dosage: 20 MG, QD (2 REGIMENS)
     Route: 048
  291. OMEPRAZOLE [Suspect]
     Active Substance: OMEPRAZOLE
     Route: 065
  292. ALBUTEROL [Suspect]
     Active Substance: ALBUTEROL
     Indication: Product used for unknown indication
  293. ALBUTEROL [Suspect]
     Active Substance: ALBUTEROL
  294. ALBUTEROL [Suspect]
     Active Substance: ALBUTEROL
     Route: 065
  295. ALBUTEROL [Suspect]
     Active Substance: ALBUTEROL
     Route: 065
  296. ALBUTEROL [Suspect]
     Active Substance: ALBUTEROL
     Route: 065
  297. ALBUTEROL [Suspect]
     Active Substance: ALBUTEROL
     Route: 065
  298. ALBUTEROL [Suspect]
     Active Substance: ALBUTEROL
     Route: 065
  299. ALBUTEROL [Suspect]
     Active Substance: ALBUTEROL
     Route: 065
  300. ALBUTEROL [Suspect]
     Active Substance: ALBUTEROL
     Route: 065
  301. ALBUTEROL [Suspect]
     Active Substance: ALBUTEROL
     Route: 065
  302. ALBUTEROL [Suspect]
     Active Substance: ALBUTEROL
     Route: 065
  303. ALBUTEROL [Suspect]
     Active Substance: ALBUTEROL
     Route: 065
  304. ALBUTEROL [Suspect]
     Active Substance: ALBUTEROL
     Route: 065
  305. ALBUTEROL [Suspect]
     Active Substance: ALBUTEROL
  306. ALBUTEROL [Suspect]
     Active Substance: ALBUTEROL
  307. ALBUTEROL [Suspect]
     Active Substance: ALBUTEROL
  308. ALBUTEROL [Suspect]
     Active Substance: ALBUTEROL
  309. ALBUTEROL [Suspect]
     Active Substance: ALBUTEROL
  310. PREDNAZOLINE [Concomitant]
     Active Substance: PREDNAZOLINE
     Indication: Product used for unknown indication
     Dosage: 1 PUFF QD (6 REGIMENS)
     Route: 045
  311. PREDNAZOLINE [Concomitant]
     Active Substance: PREDNAZOLINE
  312. OXYGEN [Concomitant]
     Active Substance: OXYGEN
     Indication: Product used for unknown indication
     Dosage: (3 REGIMENS)
  313. PREDNAZOLINE [Concomitant]
     Active Substance: PREDNAZOLINE
     Indication: Product used for unknown indication
  314. PREDNAZOLINE [Concomitant]
     Active Substance: PREDNAZOLINE
     Dosage: UNK, QD (1 PUFF QD)
     Route: 045
  315. PREDNAZOLINE [Concomitant]
     Active Substance: PREDNAZOLINE
     Dosage: 1 DOSAGE FORM, QD (1 PUFF, QD)
     Route: 045
  316. OXYCODONE HYDROCHLORIDE\OXYCODONE TEREPHTHALATE [Concomitant]
     Active Substance: OXYCODONE HYDROCHLORIDE\OXYCODONE TEREPHTHALATE
     Indication: Product used for unknown indication
  317. OXYMETAZOLINE HYDROCHLORIDE\PREDNISOLONE SODIUM PHOSPHATE [Concomitant]
     Active Substance: OXYMETAZOLINE HYDROCHLORIDE\PREDNISOLONE SODIUM PHOSPHATE
     Indication: Product used for unknown indication
     Route: 013

REACTIONS (13)
  - Cerebral artery thrombosis [Fatal]
  - Ischaemic stroke [Fatal]
  - Respiratory distress [Fatal]
  - Respiratory failure [Fatal]
  - Areflexia [Fatal]
  - Brain scan abnormal [Fatal]
  - Hemiplegia [Fatal]
  - Cerebrovascular accident [Fatal]
  - Disease recurrence [Fatal]
  - Facial paralysis [Fatal]
  - Nausea [Fatal]
  - Product use issue [Fatal]
  - Off label use [Fatal]
